FAERS Safety Report 19272985 (Version 2)
Quarter: 2021Q2

REPORT INFORMATION
  Report Type: Spontaneous
  Country: US (occurrence: US)
  Receive Date: 20210519
  Receipt Date: 20210621
  Transmission Date: 20210717
  Serious: Yes (Other)
  Sender: FDA-Public Use
  Company Number: US-HIKMA PHARMACEUTICALS USA INC.-US-H14001-21-02190

PATIENT
  Age: 50 Year
  Sex: Male
  Weight: 149.7 kg

DRUGS (7)
  1. KRATOM [Concomitant]
     Active Substance: HERBALS\MITRAGYNINE
     Indication: PRODUCT USED FOR UNKNOWN INDICATION
     Dosage: UNKNOWN
     Route: 065
  2. UNSPECIFIED STEROID [Suspect]
     Active Substance: UNSPECIFIED INGREDIENT
     Indication: GOUT
     Dosage: UNKNOWN
     Route: 065
     Dates: start: 202102
  3. DEXAMETHASONE. [Suspect]
     Active Substance: DEXAMETHASONE
     Indication: GOUT
     Dosage: UNKNOWN
     Route: 065
     Dates: start: 202102
  4. METHYLPREDNISOLONE. [Suspect]
     Active Substance: METHYLPREDNISOLONE
     Indication: GOUT
     Dosage: UNKNOWN
     Route: 048
     Dates: start: 202002
  5. PREDNISOLONE. [Suspect]
     Active Substance: PREDNISOLONE
     Indication: THYROID DISORDER
     Dosage: 6 ON FIRST DAY, 5, 4, 3, 2, 1
     Route: 048
  6. ALLOPURINOL. [Concomitant]
     Active Substance: ALLOPURINOL
     Indication: PRODUCT USED FOR UNKNOWN INDICATION
     Dosage: UNKNOWN
     Route: 065
  7. IBUPROFEN. [Concomitant]
     Active Substance: IBUPROFEN
     Indication: PRODUCT USED FOR UNKNOWN INDICATION
     Dosage: UNKNOWN
     Route: 065

REACTIONS (17)
  - Myalgia [Recovering/Resolving]
  - Mental disorder [Unknown]
  - Bone erosion [Unknown]
  - Musculoskeletal stiffness [Recovering/Resolving]
  - Schizophrenia [Unknown]
  - Gout [Unknown]
  - Blood pressure increased [Not Recovered/Not Resolved]
  - Neuralgia [Recovering/Resolving]
  - Drug ineffective [Unknown]
  - Vitamin D decreased [Unknown]
  - Blood sodium increased [Unknown]
  - Red blood cell sedimentation rate increased [Unknown]
  - Headache [Recovered/Resolved]
  - Hyperhidrosis [Not Recovered/Not Resolved]
  - Nerve injury [Unknown]
  - Malaise [Not Recovered/Not Resolved]
  - Paranoia [Unknown]

NARRATIVE: CASE EVENT DATE: 202102
